FAERS Safety Report 17917057 (Version 1)
Quarter: 2020Q2

REPORT INFORMATION
  Report Type: Spontaneous
  Country: DE (occurrence: DE)
  Receive Date: 20200619
  Receipt Date: 20200619
  Transmission Date: 20200714
  Serious: Yes (Hospitalization, Other)
  Sender: FDA-Public Use
  Company Number: DE-TEVA-2020-DE-1788794

PATIENT
  Age: 69 Year
  Sex: Male

DRUGS (11)
  1. PANTOPRAZOL [Concomitant]
     Active Substance: PANTOPRAZOLE SODIUM
     Dosage: 40 MILLIGRAM DAILY; 1-0-0-0
  2. LEVOTHYROXIN-NATRIUM [Concomitant]
     Active Substance: LEVOTHYROXINE SODIUM
     Dosage: 50 MICROGRAM DAILY; 1-0-0-0
  3. RAMIPRIL. [Suspect]
     Active Substance: RAMIPRIL
     Dosage: 10 MILLIGRAM DAILY;  1-0-0-0
     Route: 065
  4. ACETYLSALICYLSAURE [Concomitant]
     Active Substance: ASPIRIN
     Dosage: 100 MILLIGRAM DAILY;  0-1-0-0
  5. DUAKLIR GENUAIR 340MIKROGRAMM/12MIKROGRAMM [Concomitant]
     Dosage: 343.39 | 12 MICROGRAM, 1-0-1-0, INHALATION POWDER
  6. METAMIZOL [Concomitant]
     Active Substance: METAMIZOLE SODIUM
     Dosage: 2 X 30 DROPS, UNIT DOSE: 60 GTT
  7. TORASEMID [Concomitant]
     Active Substance: TORSEMIDE
     Dosage: 5 MILLIGRAM DAILY;  1-0-0-0
  8. CALCIUM/COLECALCIFEROL [Concomitant]
     Active Substance: CALCIUM\CHOLECALCIFEROL
     Dosage: 1 DOSAGE FORMS DAILY; 600 | 400 MG / IU, 1-0-0-0, CAPSULES
  9. FOLSAURE [Concomitant]
     Active Substance: FOLIC ACID
     Dosage: 5 MILLIGRAM DAILY;  1-0-0-0
  10. NALOXON/TILIDIN [Concomitant]
     Dosage: 4 DOSAGE FORMS DAILY; 4|50 MG, 1-0-1-0
  11. BISOPROLOL [Suspect]
     Active Substance: BISOPROLOL
     Dosage: 5 MILLIGRAM DAILY; 1-0-0-0
     Route: 065

REACTIONS (9)
  - Productive cough [Unknown]
  - Cachexia [Unknown]
  - Dyspnoea [Unknown]
  - Fall [Unknown]
  - General physical health deterioration [Unknown]
  - Tachypnoea [Unknown]
  - Pallor [Unknown]
  - Cough [Unknown]
  - Musculoskeletal pain [Unknown]
